FAERS Safety Report 13770617 (Version 1)
Quarter: 2017Q3

REPORT INFORMATION
  Report Type: Report from Study
  Country: US (occurrence: US)
  Receive Date: 20170719
  Receipt Date: 20170719
  Transmission Date: 20171127
  Serious: Yes (Other)
  Sender: FDA-Public Use
  Company Number: US-BAYER-2017-135521

PATIENT
  Age: 61 Year
  Sex: Male
  Weight: 84.35 kg

DRUGS (1)
  1. ADEMPAS [Suspect]
     Active Substance: RIOCIGUAT
     Indication: PULMONARY ARTERIAL HYPERTENSION
     Dosage: 1.0 MG, TID
     Route: 048
     Dates: start: 20170628

REACTIONS (7)
  - Oedema peripheral [None]
  - Dysgeusia [None]
  - Blood pressure diastolic decreased [None]
  - Dizziness [None]
  - Ascites [None]
  - Headache [None]
  - Dysphagia [None]

NARRATIVE: CASE EVENT DATE: 20170711
